FAERS Safety Report 17563646 (Version 1)
Quarter: 2020Q1

REPORT INFORMATION
  Report Type: Spontaneous
  Country: US (occurrence: US)
  Receive Date: 20200320
  Receipt Date: 20200320
  Transmission Date: 20200409
  Serious: No
  Sender: FDA-Public Use
  Company Number: US-AMGEN-USASP2020044745

PATIENT
  Sex: Male

DRUGS (1)
  1. REPATHA [Suspect]
     Active Substance: EVOLOCUMAB
     Indication: MYOPATHY
     Dosage: 140 MILLIGRAM PER MILLILITRE, Q2WK
     Route: 058

REACTIONS (3)
  - Nausea [Not Recovered/Not Resolved]
  - Off label use [Unknown]
  - Dizziness [Not Recovered/Not Resolved]
